FAERS Safety Report 7718300-6 (Version None)
Quarter: 2011Q3

REPORT INFORMATION
  Report Type: 
  Country: None (occurrence: None)
  Receive Date: 20110830
  Receipt Date: 20110822
  Transmission Date: 20111222
  Serious: Yes (Hospitalization, Other)
  Sender: FDA-Public Use
  Company Number: US-ROCHE-798953

PATIENT
  Sex: Female
  Weight: 56.2 kg

DRUGS (4)
  1. CYCLOPHOSPHAMIDE [Concomitant]
  2. DEXAMETHASONE [Concomitant]
  3. TRASTUZUMAB [Suspect]
     Dosage: DOSE FORM: INFUSION
     Route: 042
     Dates: start: 20100815
  4. DOXORUBICIN HCL [Concomitant]

REACTIONS (2)
  - HIP FRACTURE [None]
  - ATRIAL FIBRILLATION [None]
